FAERS Safety Report 18727865 (Version 4)
Quarter: 2025Q2

REPORT INFORMATION
  Report Type: Spontaneous
  Country: US (occurrence: US)
  Receive Date: 20210111
  Receipt Date: 20250507
  Transmission Date: 20250716
  Serious: Yes (Disabling, Other)
  Sender: PFIZER
  Company Number: US-PFIZER INC-2021014083

PATIENT
  Age: 60 Year
  Sex: Female

DRUGS (1)
  1. XELJANZ XR [Suspect]
     Active Substance: TOFACITINIB CITRATE
     Dates: start: 202012

REACTIONS (7)
  - Pain [Not Recovered/Not Resolved]
  - Thrombosis [Unknown]
  - Nausea [Unknown]
  - Fatigue [Not Recovered/Not Resolved]
  - Hot flush [Unknown]
  - Depression [Unknown]
  - Condition aggravated [Unknown]
